FAERS Safety Report 8936266 (Version 1)
Quarter: 2012Q4

REPORT INFORMATION
  Report Type: 
  Country: DE (occurrence: DE)
  Receive Date: 20121130
  Receipt Date: 20121130
  Transmission Date: 20130627
  Serious: Yes (Hospitalization, Other)
  Sender: FDA-Public Use
  Company Number: DE-BAYER-2012-124652

PATIENT
  Age: 64 Year
  Sex: Female
  Weight: 71 kg

DRUGS (2)
  1. GADOVIST [Suspect]
     Indication: RENAL CALCULI
     Dosage: 7 ml, ONCE
  2. GADOVIST [Suspect]
     Indication: FLANK PAIN

REACTIONS (7)
  - Dyspnoea [None]
  - Swelling face [None]
  - Localised oedema [None]
  - Eye irritation [None]
  - Dysphonia [None]
  - Feeling hot [None]
  - Oedema peripheral [None]
